FAERS Safety Report 9671033 (Version 1)
Quarter: 2013Q4

REPORT INFORMATION
  Report Type: Spontaneous
  Country: US (occurrence: US)
  Receive Date: 20131106
  Receipt Date: 20131106
  Transmission Date: 20140711
  Serious: No
  Sender: FDA-Public Use
  Company Number: US-BAYER-2013-134988

PATIENT
  Age: 57 Year
  Sex: Male
  Weight: 90.7 kg

DRUGS (2)
  1. ALEVE CAPLET [Suspect]
     Indication: TOOTHACHE
     Dosage: 1 DF, PRN
     Route: 048
     Dates: start: 20131007
  2. FISH OIL [Concomitant]

REACTIONS (1)
  - Drug ineffective [None]
